FAERS Safety Report 7778707-8 (Version None)
Quarter: 2011Q3

REPORT INFORMATION
  Report Type: 
  Country: None (occurrence: None)
  Receive Date: 20110926
  Receipt Date: 20110914
  Transmission Date: 20111222
  Serious: Yes (Hospitalization, Other)
  Sender: FDA-Public Use
  Company Number: US-BAYER-2011-028617

PATIENT
  Age: 26 Year
  Sex: Female
  Weight: 68.027 kg

DRUGS (6)
  1. YAZ [Suspect]
     Indication: CONTRACEPTION
     Dosage: UNK
     Dates: start: 20081028, end: 20090129
  2. YAZ [Suspect]
     Indication: PREMENSTRUAL SYNDROME
  3. YAZ [Suspect]
     Indication: MENSTRUATION IRREGULAR
  4. KEFLEX [Concomitant]
     Dosage: 500 MG, BID
     Route: 048
     Dates: start: 20081028
  5. CIPROFLOXACIN [Concomitant]
     Dosage: 500 MG, BID
     Route: 048
     Dates: start: 20081103
  6. LORTAB [Concomitant]
     Dosage: 7.5 MG, PRN
     Route: 048
     Dates: start: 20081103

REACTIONS (6)
  - CHEST PAIN [None]
  - MIGRAINE [None]
  - PULMONARY EMBOLISM [None]
  - THROMBOSIS [None]
  - INJURY [None]
  - DYSPNOEA [None]
